FAERS Safety Report 5725557-X (Version None)
Quarter: 2008Q2

REPORT INFORMATION
  Report Type: 
  Country: None (occurrence: None)
  Receive Date: 20080501
  Receipt Date: 20080424
  Transmission Date: 20081010
  Serious: Yes (Other)
  Sender: FDA-Public Use
  Company Number: PHBS2008SA04327

PATIENT
  Age: 50 Year
  Sex: Male

DRUGS (1)
  1. CYCLOSPORINE [Suspect]
     Indication: RENAL TRANSPLANT
     Dosage: 4 MG/KG/D
     Route: 065

REACTIONS (12)
  - BLOOD CREATININE INCREASED [None]
  - COMPLICATIONS OF TRANSPLANTED KIDNEY [None]
  - HAEMATOCRIT INCREASED [None]
  - HAEMODIALYSIS [None]
  - HAEMOGLOBIN INCREASED [None]
  - HYDRONEPHROSIS [None]
  - MEAN CELL VOLUME DECREASED [None]
  - PHLEBOTOMY [None]
  - POLYCYTHAEMIA [None]
  - RENAL IMPAIRMENT [None]
  - URETHRAL DILATATION [None]
  - URETHRAL STENOSIS [None]
